FAERS Safety Report 4520398-3 (Version None)
Quarter: 2004Q4

REPORT INFORMATION
  Report Type: 
  Country: None (occurrence: None)
  Receive Date: 20041203
  Receipt Date: 20041123
  Transmission Date: 20050328
  Serious: Yes (Disabling, Other)
  Sender: FDA-Public Use
  Company Number: 2004097398

PATIENT
  Age: 65 Year
  Sex: Male

DRUGS (4)
  1. SOMATROPIN (SOMATROPIN) [Suspect]
     Indication: HYPOPITUITARISM
     Dosage: 0.5 MG (0.5 MG, DAILY  INTERVAL: EVERY DAY), SUBCUTANEOUS
     Route: 058
     Dates: start: 19940301
  2. HYDROCORTISONE [Concomitant]
  3. BROMOCRIPTINE MESYLATE [Concomitant]
  4. THYROXINE (LEVOTHYROXINE) [Concomitant]

REACTIONS (7)
  - BLOOD PRESSURE SYSTOLIC INCREASED [None]
  - BODY DYSMORPHIC DISORDER [None]
  - FATIGUE [None]
  - HEADACHE [None]
  - INSOMNIA [None]
  - NUCLEAR MAGNETIC RESONANCE IMAGING ABNORMAL [None]
  - RETINAL DETACHMENT [None]
